FAERS Safety Report 8823273 (Version 1)
Quarter: 2012Q4

REPORT INFORMATION
  Report Type: 
  Country: CN (occurrence: CN)
  Receive Date: 20121003
  Receipt Date: 20121003
  Transmission Date: 20130627
  Serious: Yes (Disabling)
  Sender: FDA-Public Use
  Company Number: CN-GLAXOSMITHKLINE-B0834684A

PATIENT
  Sex: Male
  Weight: 70 kg

DRUGS (3)
  1. SERETIDE [Suspect]
     Indication: ASTHMA
     Dosage: 1PUFF Twice per day
     Route: 055
     Dates: start: 2009
  2. METHYLPREDNISOLONE [Concomitant]
     Indication: ASTHMA
     Route: 042
     Dates: start: 2004, end: 2009
  3. PREDNISONE [Concomitant]
     Indication: ASTHMA
     Route: 048
     Dates: start: 2004, end: 2009

REACTIONS (3)
  - Osteonecrosis [Not Recovered/Not Resolved]
  - Intervertebral disc protrusion [Unknown]
  - Back pain [Unknown]
